FAERS Safety Report 13113133 (Version 26)
Quarter: 2023Q2

REPORT INFORMATION
  Report Type: Spontaneous
  Country: CA (occurrence: None)
  Receive Date: 20170113
  Receipt Date: 20230620
  Transmission Date: 20230722
  Serious: Yes (Disabling, Other)
  Sender: FDA-Public Use
  Company Number: CA-ORION CORPORATION ORION PHARMA-TREX2016-0862

PATIENT
  Age: 65 Year
  Sex: Female

DRUGS (150)
  1. METHOTREXATE [Suspect]
     Active Substance: METHOTREXATE
     Indication: Rheumatoid arthritis
  2. METHOTREXATE [Suspect]
     Active Substance: METHOTREXATE
  3. METHOTREXATE [Suspect]
     Active Substance: METHOTREXATE
  4. METHOTREXATE [Suspect]
     Active Substance: METHOTREXATE
  5. METHOTREXATE [Suspect]
     Active Substance: METHOTREXATE
  6. METHOTREXATE [Suspect]
     Active Substance: METHOTREXATE
  7. METHOTREXATE [Suspect]
     Active Substance: METHOTREXATE
  8. METHOTREXATE [Suspect]
     Active Substance: METHOTREXATE
  9. ENBREL [Suspect]
     Active Substance: ETANERCEPT
     Indication: Rheumatoid arthritis
     Dates: start: 2013, end: 2013
  10. ENBREL [Suspect]
     Active Substance: ETANERCEPT
  11. ENBREL [Suspect]
     Active Substance: ETANERCEPT
     Dates: end: 2013
  12. ENBREL [Suspect]
     Active Substance: ETANERCEPT
  13. ENBREL [Suspect]
     Active Substance: ETANERCEPT
  14. ACTEMRA [Suspect]
     Active Substance: TOCILIZUMAB
     Indication: Rheumatoid arthritis
  15. ACTEMRA [Suspect]
     Active Substance: TOCILIZUMAB
  16. ACTEMRA [Suspect]
     Active Substance: TOCILIZUMAB
  17. ACTEMRA [Suspect]
     Active Substance: TOCILIZUMAB
  18. ACTEMRA [Suspect]
     Active Substance: TOCILIZUMAB
  19. ACTEMRA [Suspect]
     Active Substance: TOCILIZUMAB
  20. ACTEMRA [Suspect]
     Active Substance: TOCILIZUMAB
  21. ACTEMRA [Suspect]
     Active Substance: TOCILIZUMAB
  22. HUMIRA [Suspect]
     Active Substance: ADALIMUMAB
     Indication: Rheumatoid arthritis
     Dates: start: 2010
  23. HUMIRA [Suspect]
     Active Substance: ADALIMUMAB
  24. HUMIRA [Suspect]
     Active Substance: ADALIMUMAB
  25. HUMIRA [Suspect]
     Active Substance: ADALIMUMAB
  26. HUMIRA [Suspect]
     Active Substance: ADALIMUMAB
  27. HUMIRA [Suspect]
     Active Substance: ADALIMUMAB
  28. ORENCIA [Suspect]
     Active Substance: ABATACEPT
     Indication: Rheumatoid arthritis
  29. ORENCIA [Suspect]
     Active Substance: ABATACEPT
  30. ORENCIA [Suspect]
     Active Substance: ABATACEPT
  31. ORENCIA [Suspect]
     Active Substance: ABATACEPT
  32. ORENCIA [Suspect]
     Active Substance: ABATACEPT
  33. ORENCIA [Suspect]
     Active Substance: ABATACEPT
  34. ORENCIA [Suspect]
     Active Substance: ABATACEPT
  35. ORENCIA [Suspect]
     Active Substance: ABATACEPT
  36. ORENCIA [Suspect]
     Active Substance: ABATACEPT
  37. REMICADE [Suspect]
     Active Substance: INFLIXIMAB
     Indication: Rheumatoid arthritis
  38. REMICADE [Suspect]
     Active Substance: INFLIXIMAB
     Indication: Crohn^s disease
  39. REMICADE [Suspect]
     Active Substance: INFLIXIMAB
  40. REMICADE [Suspect]
     Active Substance: INFLIXIMAB
  41. REMICADE [Suspect]
     Active Substance: INFLIXIMAB
  42. REMICADE [Suspect]
     Active Substance: INFLIXIMAB
  43. REMICADE [Suspect]
     Active Substance: INFLIXIMAB
  44. RITUXAN [Suspect]
     Active Substance: RITUXIMAB
     Indication: Rheumatoid arthritis
     Dates: start: 2015, end: 20160216
  45. RITUXAN [Suspect]
     Active Substance: RITUXIMAB
  46. RITUXAN [Suspect]
     Active Substance: RITUXIMAB
  47. RITUXAN [Suspect]
     Active Substance: RITUXIMAB
  48. RITUXAN [Suspect]
     Active Substance: RITUXIMAB
     Dates: end: 20160216
  49. RITUXAN [Suspect]
     Active Substance: RITUXIMAB
  50. PLAQUENIL [Suspect]
     Active Substance: HYDROXYCHLOROQUINE SULFATE
     Indication: Rheumatoid arthritis
     Dates: start: 2007
  51. PLAQUENIL [Suspect]
     Active Substance: HYDROXYCHLOROQUINE SULFATE
  52. PLAQUENIL [Suspect]
     Active Substance: HYDROXYCHLOROQUINE SULFATE
  53. LEFLUNOMIDE [Suspect]
     Active Substance: LEFLUNOMIDE
     Indication: Rheumatoid arthritis
  54. LEFLUNOMIDE [Suspect]
     Active Substance: LEFLUNOMIDE
  55. LEFLUNOMIDE [Suspect]
     Active Substance: LEFLUNOMIDE
  56. LEFLUNOMIDE [Suspect]
     Active Substance: LEFLUNOMIDE
  57. LEFLUNOMIDE [Suspect]
     Active Substance: LEFLUNOMIDE
  58. LEFLUNOMIDE [Suspect]
     Active Substance: LEFLUNOMIDE
     Indication: Rheumatoid arthritis
  59. LEFLUNOMIDE [Suspect]
     Active Substance: LEFLUNOMIDE
  60. LEFLUNOMIDE [Suspect]
     Active Substance: LEFLUNOMIDE
  61. HYDROXYCHLOROQUINE SULFATE [Suspect]
     Active Substance: HYDROXYCHLOROQUINE SULFATE
     Indication: Rheumatoid arthritis
  62. HYDROXYCHLOROQUINE [Suspect]
     Active Substance: HYDROXYCHLOROQUINE
     Indication: Rheumatoid arthritis
  63. HYDROXYCHLOROQUINE [Suspect]
     Active Substance: HYDROXYCHLOROQUINE
  64. HYDROXYCHLOROQUINE [Suspect]
     Active Substance: HYDROXYCHLOROQUINE
  65. HYDROXYCHLOROQUINE [Suspect]
     Active Substance: HYDROXYCHLOROQUINE
  66. HYDROXYCHLOROQUINE SULFATE [Suspect]
     Active Substance: HYDROXYCHLOROQUINE SULFATE
     Indication: Rheumatoid arthritis
  67. HYDROXYCHLOROQUINE SULFATE [Suspect]
     Active Substance: HYDROXYCHLOROQUINE SULFATE
  68. HYDROXYCHLOROQUINE SULFATE [Suspect]
     Active Substance: HYDROXYCHLOROQUINE SULFATE
  69. HYDROXYCHLOROQUINE SULFATE [Suspect]
     Active Substance: HYDROXYCHLOROQUINE SULFATE
  70. HYDROXYCHLOROQUINE SULFATE [Suspect]
     Active Substance: HYDROXYCHLOROQUINE SULFATE
  71. AZATHIOPRINE [Suspect]
     Active Substance: AZATHIOPRINE
     Indication: Rheumatoid arthritis
  72. AZATHIOPRINE [Suspect]
     Active Substance: AZATHIOPRINE
  73. AZATHIOPRINE [Suspect]
     Active Substance: AZATHIOPRINE
  74. AZATHIOPRINE [Suspect]
     Active Substance: AZATHIOPRINE
  75. AZATHIOPRINE [Suspect]
     Active Substance: AZATHIOPRINE
     Indication: Rheumatoid arthritis
  76. AZATHIOPRINE [Suspect]
     Active Substance: AZATHIOPRINE
  77. XELJANZ [Suspect]
     Active Substance: TOFACITINIB CITRATE
     Indication: Rheumatoid arthritis
  78. XELJANZ [Suspect]
     Active Substance: TOFACITINIB CITRATE
  79. XELJANZ [Suspect]
     Active Substance: TOFACITINIB CITRATE
  80. SULFASALAZINE [Suspect]
     Active Substance: SULFASALAZINE
     Indication: Rheumatoid arthritis
  81. SULFASALAZINE [Suspect]
     Active Substance: SULFASALAZINE
  82. ARAVA [Suspect]
     Active Substance: LEFLUNOMIDE
     Indication: Product used for unknown indication
  83. ARAVA [Suspect]
     Active Substance: LEFLUNOMIDE
  84. BUDESONIDE [Suspect]
     Active Substance: BUDESONIDE
     Indication: Product used for unknown indication
  85. CODEINE [Suspect]
     Active Substance: CODEINE
     Indication: Rheumatoid arthritis
  86. CODEINE [Suspect]
     Active Substance: CODEINE
  87. MAGNESIUM OXIDE [Suspect]
     Active Substance: MAGNESIUM OXIDE
     Indication: Product used for unknown indication
  88. MYOCHRYSINE [Suspect]
     Active Substance: GOLD SODIUM THIOMALATE
     Indication: Rheumatoid arthritis
  89. FOSAMAX [Suspect]
     Active Substance: ALENDRONATE SODIUM
     Indication: Product used for unknown indication
  90. RITUXIMAB [Suspect]
     Active Substance: RITUXIMAB
     Indication: Rheumatoid arthritis
  91. RITUXIMAB [Suspect]
     Active Substance: RITUXIMAB
  92. RITUXIMAB [Suspect]
     Active Substance: RITUXIMAB
  93. RITUXIMAB [Suspect]
     Active Substance: RITUXIMAB
  94. RITUXIMAB [Suspect]
     Active Substance: RITUXIMAB
  95. COSENTYX [Suspect]
     Active Substance: SECUKINUMAB
     Indication: Product used for unknown indication
  96. TALTZ [Suspect]
     Active Substance: IXEKIZUMAB
     Indication: Product used for unknown indication
  97. TOCILIZUMAB [Suspect]
     Active Substance: TOCILIZUMAB
     Indication: Rheumatoid arthritis
  98. TOCILIZUMAB [Suspect]
     Active Substance: TOCILIZUMAB
  99. INFLIXIMAB [Suspect]
     Active Substance: INFLIXIMAB
     Indication: Psoriasis
  100. INFLIXIMAB [Suspect]
     Active Substance: INFLIXIMAB
     Indication: Ankylosing spondylitis
  101. CIMZIA [Suspect]
     Active Substance: CERTOLIZUMAB PEGOL
     Indication: Product used for unknown indication
     Route: 065
  102. ERELZI [Suspect]
     Active Substance: ETANERCEPT-SZZS
     Indication: Product used for unknown indication
  103. SIMPONI [Suspect]
     Active Substance: GOLIMUMAB
     Indication: Product used for unknown indication
  104. PREDNISONE [Concomitant]
     Active Substance: PREDNISONE
     Indication: Rheumatoid arthritis
     Dates: start: 20160503
  105. PREDNISONE [Concomitant]
     Active Substance: PREDNISONE
     Dates: start: 20160511
  106. PREDNISONE [Concomitant]
     Active Substance: PREDNISONE
  107. PREDNISONE [Concomitant]
     Active Substance: PREDNISONE
  108. PREDNISONE [Concomitant]
     Active Substance: PREDNISONE
  109. PREDNISONE [Concomitant]
     Active Substance: PREDNISONE
  110. PREDNISONE [Concomitant]
     Active Substance: PREDNISONE
  111. LYRICA [Concomitant]
     Active Substance: PREGABALIN
  112. ALENDRONATE SODIUM [Concomitant]
     Active Substance: ALENDRONATE SODIUM
  113. AMLODIPINE [Concomitant]
     Active Substance: AMLODIPINE BESYLATE
  114. ATENOLOL [Concomitant]
     Active Substance: ATENOLOL
  115. ATENOLOL [Concomitant]
     Active Substance: ATENOLOL
  116. ATENOLOL [Concomitant]
     Active Substance: ATENOLOL
  117. CYANOCOBALAMIN [Concomitant]
     Active Substance: CYANOCOBALAMIN
  118. ERGOCALCIFEROL [Concomitant]
     Active Substance: ERGOCALCIFEROL
  119. GOLD [Concomitant]
     Active Substance: GOLD
  120. HYDROCHLOROTHIAZIDE [Concomitant]
     Active Substance: HYDROCHLOROTHIAZIDE
  121. IRON [Concomitant]
     Active Substance: IRON
  122. PRAMIPEXOLE [Concomitant]
     Active Substance: PRAMIPEXOLE
  123. PROPRANOLOL [Concomitant]
     Active Substance: PROPRANOLOL HYDROCHLORIDE
  124. RAMIPRIL [Concomitant]
     Active Substance: RAMIPRIL
  125. SERTRALINE [Concomitant]
     Active Substance: SERTRALINE HYDROCHLORIDE
  126. SIMPONI [Concomitant]
     Active Substance: GOLIMUMAB
  127. TRAZODONE [Concomitant]
     Active Substance: TRAZODONE HYDROCHLORIDE
     Indication: Rheumatoid arthritis
  128. ASPIRIN [Concomitant]
     Active Substance: ASPIRIN
  129. ALPRAZOLAM [Concomitant]
     Active Substance: ALPRAZOLAM
  130. BISOPROLOL [Concomitant]
     Active Substance: BISOPROLOL
  131. CELEBREX [Concomitant]
     Active Substance: CELECOXIB
  132. ESOMEPRAZOLE [Concomitant]
     Active Substance: ESOMEPRAZOLE
     Indication: Gastric disorder
  133. FOLIC ACID [Concomitant]
     Active Substance: FOLIC ACID
  134. IRON SUCROSE [Concomitant]
     Active Substance: IRON SUCROSE
  135. METFORMIN [Concomitant]
     Active Substance: METFORMIN HYDROCHLORIDE
  136. MORPHINE SULFATE [Concomitant]
     Active Substance: MORPHINE SULFATE
  137. PANTOPRAZOLE [Concomitant]
     Active Substance: PANTOPRAZOLE
  138. PAROXETINE [Concomitant]
     Active Substance: PAROXETINE
  139. RISEDRONATE SODIUM [Concomitant]
     Active Substance: RISEDRONATE SODIUM
  140. SIMVASTATIN [Concomitant]
     Active Substance: SIMVASTATIN
  141. TELMISARTAN [Concomitant]
     Active Substance: TELMISARTAN
  142. AMLODIPINE BESYLATE [Concomitant]
     Active Substance: AMLODIPINE BESYLATE
  143. BISOPROLOL FUMARATE\HYDROCHLOROTHIAZIDE [Concomitant]
     Active Substance: BISOPROLOL FUMARATE\HYDROCHLOROTHIAZIDE
  144. ESOMEPRAZOLE MAGNESIUM [Concomitant]
     Active Substance: ESOMEPRAZOLE MAGNESIUM
  145. PAROXETINE HYDROCHLORIDE [Concomitant]
     Active Substance: PAROXETINE HYDROCHLORIDE
  146. PRAMIPEXOLE DIHYDROCHLORIDE [Concomitant]
     Active Substance: PRAMIPEXOLE DIHYDROCHLORIDE
  147. RISEDRONATE SODIUM [Concomitant]
     Active Substance: RISEDRONATE SODIUM
  148. SACCHARATED IRON OXIDE [Concomitant]
     Active Substance: IRON SUCROSE
  149. SERTRALINE HYDROCHLORIDE [Concomitant]
     Active Substance: SERTRALINE HYDROCHLORIDE
  150. ACETOPHEN [Concomitant]

REACTIONS (51)
  - Drug ineffective [Unknown]
  - Treatment failure [Unknown]
  - Product use issue [Not Recovered/Not Resolved]
  - Therapeutic response decreased [Unknown]
  - Therapeutic product effect decreased [Unknown]
  - Rheumatoid arthritis [Not Recovered/Not Resolved]
  - Pneumonia [Not Recovered/Not Resolved]
  - Hepatic enzyme increased [Not Recovered/Not Resolved]
  - Loss of personal independence in daily activities [Not Recovered/Not Resolved]
  - Pulmonary fibrosis [Not Recovered/Not Resolved]
  - Arthralgia [Not Recovered/Not Resolved]
  - Joint swelling [Not Recovered/Not Resolved]
  - Arthritis [Not Recovered/Not Resolved]
  - Arthropathy [Not Recovered/Not Resolved]
  - Abdominal pain [Not Recovered/Not Resolved]
  - Blood parathyroid hormone decreased [Not Recovered/Not Resolved]
  - C-reactive protein increased [Not Recovered/Not Resolved]
  - Drug eruption [Not Recovered/Not Resolved]
  - Drug hypersensitivity [Not Recovered/Not Resolved]
  - Drug intolerance [Not Recovered/Not Resolved]
  - Drug tolerance decreased [Not Recovered/Not Resolved]
  - Erythema [Not Recovered/Not Resolved]
  - Granuloma skin [Not Recovered/Not Resolved]
  - Hypercalcaemia [Not Recovered/Not Resolved]
  - Hypersensitivity [Not Recovered/Not Resolved]
  - Inflammation [Not Recovered/Not Resolved]
  - Insomnia [Not Recovered/Not Resolved]
  - Musculoskeletal stiffness [Not Recovered/Not Resolved]
  - Pain [Not Recovered/Not Resolved]
  - Panniculitis [Not Recovered/Not Resolved]
  - Rash pruritic [Not Recovered/Not Resolved]
  - Red blood cell sedimentation rate increased [Not Recovered/Not Resolved]
  - Rheumatoid nodule [Not Recovered/Not Resolved]
  - Skin necrosis [Not Recovered/Not Resolved]
  - Skin ulcer [Not Recovered/Not Resolved]
  - Synovitis [Not Recovered/Not Resolved]
  - Ulcer [Not Recovered/Not Resolved]
  - Hypertension [Not Recovered/Not Resolved]
  - Rheumatoid factor positive [Not Recovered/Not Resolved]
  - Alanine aminotransferase increased [Not Recovered/Not Resolved]
  - Aspartate aminotransferase increased [Not Recovered/Not Resolved]
  - Basal cell carcinoma [Not Recovered/Not Resolved]
  - Headache [Not Recovered/Not Resolved]
  - Rash [Not Recovered/Not Resolved]
  - Pruritus [Not Recovered/Not Resolved]
  - Peripheral swelling [Not Recovered/Not Resolved]
  - Deafness [Recovered/Resolved]
  - Condition aggravated [Not Recovered/Not Resolved]
  - Contraindicated product administered [Not Recovered/Not Resolved]
  - Prescribed underdose [Not Recovered/Not Resolved]
  - Off label use [Not Recovered/Not Resolved]

NARRATIVE: CASE EVENT DATE: 20130101
